FAERS Safety Report 12771244 (Version 1)
Quarter: 2016Q3

REPORT INFORMATION
  Report Type: Report from Study
  Country: US (occurrence: US)
  Receive Date: 20160922
  Receipt Date: 20160922
  Transmission Date: 20161109
  Serious: No
  Sender: FDA-Public Use
  Company Number: US-AMGEN-USASL2016116378

PATIENT
  Age: 29 Year
  Sex: Female

DRUGS (8)
  1. PREDNISONE. [Concomitant]
     Active Substance: PREDNISONE
     Indication: PSORIASIS
     Dosage: 5 MG, QD
     Route: 048
     Dates: start: 2016
  2. PREDNISONE. [Concomitant]
     Active Substance: PREDNISONE
     Dosage: 20X3 DAYS
     Route: 048
     Dates: start: 201608
  3. PREDNISONE. [Concomitant]
     Active Substance: PREDNISONE
     Dosage: 40X3 DAYS
     Route: 048
     Dates: start: 201608
  4. ENBREL [Suspect]
     Active Substance: ETANERCEPT
     Indication: PSORIASIS
     Dosage: 50 MG, 2 TIMES/WK
     Route: 065
     Dates: start: 20160805
  5. PREDNISONE. [Concomitant]
     Active Substance: PREDNISONE
     Dosage: 30 MG, UNK
     Route: 048
     Dates: start: 20160831, end: 20160831
  6. PREDNISONE. [Concomitant]
     Active Substance: PREDNISONE
     Dosage: 10X3 DAYS
     Route: 048
     Dates: start: 201608
  7. PREDNISONE. [Concomitant]
     Active Substance: PREDNISONE
     Indication: RASH
     Dosage: 50X3 DAYSUNK
     Route: 048
     Dates: start: 201608
  8. PREDNISONE. [Concomitant]
     Active Substance: PREDNISONE
     Dosage: 30X3 DAYS
     Route: 048
     Dates: start: 201608

REACTIONS (1)
  - Rash generalised [Unknown]

NARRATIVE: CASE EVENT DATE: 20160819
